FAERS Safety Report 24624416 (Version 1)
Quarter: 2024Q4

REPORT INFORMATION
  Report Type: Spontaneous
  Country: GB (occurrence: GB)
  Receive Date: 20241115
  Receipt Date: 20241115
  Transmission Date: 20250115
  Serious: Yes (Other)
  Sender: ESPERION THERAPEUTICS
  Company Number: None

PATIENT

DRUGS (10)
  1. BEMPEDOIC ACID [Suspect]
     Active Substance: BEMPEDOIC ACID
     Indication: Ill-defined disorder
     Dosage: 180 MG, QD (180MG TABLETS, TAKE ONE DAILY IN THE MORNING)
     Route: 065
     Dates: start: 20241009
  2. HYLO NIGHT [Concomitant]
     Indication: Ill-defined disorder
     Dosage: UNK (APPLY TO BOTH EYES NIGHT)
     Route: 065
     Dates: start: 20240325
  3. HYLO FORTE [Concomitant]
     Indication: Ill-defined disorder
     Dosage: UNK (APPLY TO BOTH EYES 4 TIMES THROUGHOUT THE DAY)
     Route: 065
     Dates: start: 20240325
  4. LEVOTHYROXINE [Concomitant]
     Active Substance: LEVOTHYROXINE
     Indication: Ill-defined disorder
     Dosage: 1 DOSAGE FORM, QD (ONE TO BE TAKEN DAILY)
     Route: 065
     Dates: start: 20240325
  5. OMEPRAZOLE [Concomitant]
     Active Substance: OMEPRAZOLE
     Indication: Ill-defined disorder
     Dosage: 1 DOSAGE FORM, QD (ONE TO BE TAKEN DAILY)
     Route: 065
     Dates: start: 20240325
  6. EZETIMIBE [Concomitant]
     Active Substance: EZETIMIBE
     Indication: Ill-defined disorder
     Dosage: 1 DOSAGE FORM, QD (ONE TO BE TAKEN DAILY)
     Route: 065
     Dates: start: 20240328, end: 20241009
  7. CLOTRIMAZOLE [Concomitant]
     Active Substance: CLOTRIMAZOLE
     Indication: Ill-defined disorder
     Dosage: UNK (APPLY TWO OR THREE TIMES DAILY BENEATH THE BUST)
     Route: 065
     Dates: start: 20240710
  8. IBUPROFEN [Concomitant]
     Active Substance: IBUPROFEN
     Indication: Ill-defined disorder
     Dosage: UNK (APPLY THREE TIMES A DAY WHEN REQUIRED)
     Route: 065
     Dates: start: 20240710
  9. LYMECYCLINE [Concomitant]
     Active Substance: LYMECYCLINE
     Indication: Ill-defined disorder
     Dosage: UNK UNK, QD (ONE DAILY)
     Route: 065
     Dates: start: 20240710
  10. LANOLIN\LIGHT MINERAL OIL\PARAFFIN [Concomitant]
     Active Substance: LANOLIN\LIGHT MINERAL OIL\PARAFFIN
     Indication: Ill-defined disorder
     Dosage: UNK UNK, AS NEEDED (USE AS DIRECTED)
     Route: 065
     Dates: start: 20241009

REACTIONS (1)
  - Gastrooesophageal reflux disease [Recovering/Resolving]
